FAERS Safety Report 17681365 (Version 1)
Quarter: 2020Q2

REPORT INFORMATION
  Report Type: Spontaneous
  Country: FR (occurrence: FR)
  Receive Date: 20200417
  Receipt Date: 20200417
  Transmission Date: 20200714
  Serious: Yes (Hospitalization)
  Sender: FDA-Public Use
  Company Number: FR-JNJFOC-20200412532

PATIENT
  Age: 58 Year
  Sex: Female

DRUGS (1)
  1. EPITOMAX [Suspect]
     Active Substance: TOPIRAMATE
     Indication: PRODUCT USED FOR UNKNOWN INDICATION
     Dosage: 1 TABLET IN THE MORNING (8:00 AM) AND 1 TABLET IN THE EVENING (BETWEEN 6:00 AND 8:00 PM).
     Route: 048

REACTIONS (2)
  - Hospitalisation [Unknown]
  - Product dose omission [Unknown]
